FAERS Safety Report 14734527 (Version 1)
Quarter: 2018Q2

REPORT INFORMATION
  Report Type: Spontaneous
  Country: US (occurrence: None)
  Receive Date: 20180404
  Receipt Date: 20180404
  Transmission Date: 20180711
  Serious: No
  Sender: FDA-Public Use
  Company Number: DL2018-004

PATIENT
  Age: 25 Year
  Sex: Female

DRUGS (3)
  1. MIFEPRISTONE TABLETS, 200 MG (DANCO LABS) [Suspect]
     Active Substance: MIFEPRISTONE
     Indication: ABORTION INDUCED
     Route: 048
     Dates: start: 20171014
  2. AZITHROMYCIN ANHYDROUS. [Concomitant]
     Active Substance: AZITHROMYCIN ANHYDROUS
  3. MISOPROSTOL TABLETS, 200 MCG [Suspect]
     Active Substance: MISOPROSTOL
     Route: 067
     Dates: start: 20171015

REACTIONS (3)
  - Anaemia [None]
  - Haemorrhage [None]
  - Muscle spasms [None]

NARRATIVE: CASE EVENT DATE: 20171107
